FAERS Safety Report 14181518 (Version 21)
Quarter: 2023Q4

REPORT INFORMATION
  Report Type: Report from Study
  Country: JP (occurrence: JP)
  Receive Date: 20171112
  Receipt Date: 20231207
  Transmission Date: 20240110
  Serious: Yes (Death, Hospitalization)
  Sender: FDA-Public Use
  Company Number: JP-ABBVIE-17K-087-2159937-00

PATIENT
  Age: 68 Year
  Sex: Male
  Weight: 52 kg

DRUGS (16)
  1. CARBIDOPA\LEVODOPA [Suspect]
     Active Substance: CARBIDOPA\LEVODOPA
     Indication: Parkinson^s disease
     Dosage: MD: 13 ML, CD: 5 ML/HR ? 16 HRS, ED: 2 ML/UNIT
     Route: 050
     Dates: start: 20180404, end: 20200320
  2. CARBIDOPA\LEVODOPA [Suspect]
     Active Substance: CARBIDOPA\LEVODOPA
     Dosage: MD: 15 ML, CD: 5.0 ML/HR X 16 HR
     Route: 050
     Dates: start: 20170706, end: 20171013
  3. CARBIDOPA\LEVODOPA [Suspect]
     Active Substance: CARBIDOPA\LEVODOPA
     Dosage: MD: 15 ML, CD: 4.6 ML/HR X 16 HR, END DATE; OCT 2017.
     Route: 050
     Dates: start: 20171013
  4. CARBIDOPA\LEVODOPA [Suspect]
     Active Substance: CARBIDOPA\LEVODOPA
     Dosage: MD: 4.6 ML, CD: 4.6 ML/HR X 16 HR, ED: 2 ML/UNIT X 2
     Route: 050
     Dates: start: 20171017, end: 20171115
  5. CARBIDOPA\LEVODOPA [Suspect]
     Active Substance: CARBIDOPA\LEVODOPA
     Dosage: MD: 4.7 ML, CD: 4.7 ML/HR X 16 HR, ED: 2 ML/UNIT X 2
     Route: 050
     Dates: start: 20171116, end: 20171230
  6. CARBIDOPA\LEVODOPA [Suspect]
     Active Substance: CARBIDOPA\LEVODOPA
     Dosage: MD: 5 ML, CD: 5 ML/HR X 16 HR, ED: 2 ML/UNIT X 2 TIMES
     Route: 050
     Dates: start: 20171231, end: 20180302
  7. CARBIDOPA\LEVODOPA [Suspect]
     Active Substance: CARBIDOPA\LEVODOPA
     Dosage: MD: 5 ML CD: 5.1 ML/HR ? 16 HRS ED: 2 ML/UNIT ? 2 TIMES
     Route: 050
     Dates: start: 20180303, end: 20180331
  8. CARBIDOPA\LEVODOPA [Suspect]
     Active Substance: CARBIDOPA\LEVODOPA
     Route: 050
  9. CARBIDOPA\LEVODOPA [Concomitant]
     Active Substance: CARBIDOPA\LEVODOPA
     Indication: Parkinson^s disease
     Dosage: 200 MILLIGRAM
     Route: 048
     Dates: start: 20180110, end: 20200320
  10. EDOXABAN TOSYLATE [Concomitant]
     Active Substance: EDOXABAN TOSYLATE
     Indication: Prophylaxis
     Route: 048
  11. CELECOXIB [Concomitant]
     Active Substance: CELECOXIB
     Indication: Product used for unknown indication
     Route: 048
  12. MAGNESIUM OXIDE [Concomitant]
     Active Substance: MAGNESIUM OXIDE
     Indication: Product used for unknown indication
     Route: 048
  13. METHYLCOBALAMIN [Concomitant]
     Active Substance: METHYLCOBALAMIN
     Indication: Prophylaxis
     Route: 048
  14. NEUPRO [Concomitant]
     Active Substance: ROTIGOTINE
     Indication: Parkinson^s disease
     Route: 062
     Dates: start: 20171006, end: 20200320
  15. ISTRADEFYLLINE [Concomitant]
     Active Substance: ISTRADEFYLLINE
     Indication: Parkinson^s disease
     Dosage: 40 MILLIGRAM
     Route: 048
     Dates: start: 20180104, end: 20200320
  16. OMEPRAZOLE [Concomitant]
     Active Substance: OMEPRAZOLE
     Indication: Product used for unknown indication

REACTIONS (11)
  - Sudden death [Fatal]
  - Device dislocation [Recovered/Resolved]
  - Femur fracture [Recovering/Resolving]
  - Fall [Unknown]
  - Hallucination [Recovering/Resolving]
  - Hospitalisation [Unknown]
  - Compression fracture [Unknown]
  - Dyskinesia [Recovering/Resolving]
  - Stoma site reaction [Unknown]
  - Device expulsion [Recovered/Resolved]
  - Gastric ulcer [Unknown]

NARRATIVE: CASE EVENT DATE: 20170706
